FAERS Safety Report 16043647 (Version 1)
Quarter: 2019Q1

REPORT INFORMATION
  Report Type: Report from Study
  Country: CA (occurrence: CA)
  Receive Date: 20190306
  Receipt Date: 20190306
  Transmission Date: 20190418
  Serious: Yes (Other)
  Sender: FDA-Public Use
  Company Number: CA-PFIZER INC-2019095287

PATIENT
  Age: 73 Year
  Sex: Female

DRUGS (3)
  1. DASATINIB MONOHYDRATE [Suspect]
     Active Substance: DASATINIB
     Dosage: UNK
     Route: 065
  2. BOSULIF [Suspect]
     Active Substance: BOSUTINIB MONOHYDRATE
     Dosage: UNK
     Route: 065
  3. GLEEVEC [Suspect]
     Active Substance: IMATINIB MESYLATE
     Indication: CHRONIC MYELOID LEUKAEMIA
     Dosage: UNK
     Route: 048

REACTIONS (6)
  - Liver disorder [Unknown]
  - Skin burning sensation [Unknown]
  - Hepatitis [Unknown]
  - Rash [Unknown]
  - Pulmonary hypertension [Unknown]
  - Drug intolerance [Unknown]
